FAERS Safety Report 9016548 (Version 2)
Quarter: 2013Q3

REPORT INFORMATION
  Report Type: Report from Study
  Country: JP (occurrence: JP)
  Receive Date: 20130117
  Receipt Date: 20130701
  Transmission Date: 20140515
  Serious: Yes (Hospitalization)
  Sender: FDA-Public Use
  Company Number: JP-009507513-1207JPN007897

PATIENT
  Age: 61 Year
  Sex: Male
  Weight: 65 kg

DRUGS (14)
  1. PEGINTRON [Suspect]
     Indication: CHRONIC HEPATITIS C
     Dosage: 1.50 MICROGRAM PER KILOGRAM, QW
     Route: 058
     Dates: start: 20120702, end: 20121015
  2. PEGINTRON [Suspect]
     Indication: CHRONIC HEPATITIS C
  3. REBETOL [Suspect]
     Indication: CHRONIC HEPATITIS C
     Dosage: 800 MG, QD
     Route: 048
     Dates: start: 20120702, end: 20120716
  4. REBETOL [Suspect]
     Indication: CHRONIC HEPATITIS C
     Dosage: 600 MG, QD
     Route: 048
     Dates: start: 20120717, end: 20120805
  5. REBETOL [Suspect]
     Dosage: 400 MG, QD
     Route: 048
     Dates: start: 20120806, end: 20120812
  6. REBETOL [Suspect]
     Dosage: 300 MG, QD
     Route: 048
     Dates: start: 20120813, end: 20120819
  7. REBETOL [Suspect]
     Dosage: 200 MG, QD
     Route: 048
     Dates: start: 20120820, end: 20121020
  8. TELAVIC [Suspect]
     Indication: CHRONIC HEPATITIS C
     Dosage: 2250 MG, QD
     Route: 048
     Dates: start: 20120702, end: 20120819
  9. TELAVIC [Suspect]
     Indication: CHRONIC HEPATITIS C
     Dosage: 1500 MG, QD
     Route: 048
     Dates: start: 20120820, end: 20120902
  10. TELAVIC [Suspect]
     Dosage: 750 MG, QD
     Route: 048
     Dates: start: 20120903, end: 20120923
  11. NEXIUM [Concomitant]
     Indication: PROPHYLAXIS
     Dosage: 20 MG, QD FORMULATION:POR
     Route: 048
     Dates: start: 20120702, end: 20121021
  12. NEXIUM [Concomitant]
     Dosage: 20 MG, QD FORMULATION:POR
     Route: 048
     Dates: start: 20121102, end: 20121115
  13. MUCOSTA [Concomitant]
     Indication: PROPHYLAXIS
     Dosage: 100 MG, 3/1 DAY
     Route: 048
     Dates: start: 20120702, end: 20121021
  14. VEGAMOX [Concomitant]
     Indication: CATARACT
     Dosage: PROPER QUANTITY/ DAY, DAILY DOSE UNKNOWN, FORMULATION: EED
     Route: 031
     Dates: start: 20120725, end: 20120805

REACTIONS (2)
  - Pancreatitis acute [Recovered/Resolved]
  - Pyrexia [Unknown]
